FAERS Safety Report 26037923 (Version 2)
Quarter: 2025Q4

REPORT INFORMATION
  Report Type: Spontaneous
  Country: JP (occurrence: JP)
  Receive Date: 20251112
  Receipt Date: 20251229
  Transmission Date: 20260118
  Serious: Yes (Hospitalization, Other)
  Sender: JAZZ
  Company Number: JP-JAZZ PHARMACEUTICALS-2025-JP-026067

PATIENT
  Age: 74 Year
  Sex: Female
  Weight: 64 kg

DRUGS (5)
  1. VYXEOS [Suspect]
     Active Substance: CYTARABINE\DAUNORUBICIN
     Indication: Acute myeloid leukaemia
     Dosage: 100 UNITS PER SQUARE METER, DAY
     Dates: start: 20250602, end: 20250602
  2. VYXEOS [Suspect]
     Active Substance: CYTARABINE\DAUNORUBICIN
     Dosage: UNK
     Dates: start: 20250604, end: 20250604
  3. VYXEOS [Suspect]
     Active Substance: CYTARABINE\DAUNORUBICIN
     Dosage: UNK
     Dates: start: 20250606, end: 20250606
  4. MEROPENEM [Suspect]
     Active Substance: MEROPENEM
     Indication: Product used for unknown indication
     Dosage: UNK
  5. VANCOMYCIN HYDROCHLORIDE [Suspect]
     Active Substance: VANCOMYCIN HYDROCHLORIDE
     Indication: Product used for unknown indication
     Dosage: UNK

REACTIONS (5)
  - Acute myeloid leukaemia [Not Recovered/Not Resolved]
  - Febrile neutropenia [Recovered/Resolved]
  - Anaemia [Recovering/Resolving]
  - Thrombocytopenia [Recovering/Resolving]
  - Rash [Recovering/Resolving]

NARRATIVE: CASE EVENT DATE: 20250609
